FAERS Safety Report 9839031 (Version 1)
Quarter: 2014Q1

REPORT INFORMATION
  Report Type: Spontaneous
  Country: CA (occurrence: CA)
  Receive Date: 20140123
  Receipt Date: 20140123
  Transmission Date: 20141002
  Serious: Yes (Death)
  Sender: FDA-Public Use
  Company Number: CA-ASTRAZENECA-2014SE04466

PATIENT
  Age: 50 Year
  Sex: Male

DRUGS (1)
  1. BRILINTA [Suspect]
     Route: 048
     Dates: start: 2013

REACTIONS (2)
  - Haemorrhage [Fatal]
  - Post procedural complication [Fatal]
